FAERS Safety Report 8237808 (Version 5)
Quarter: 2013Q2

REPORT INFORMATION
  Report Type: Spontaneous
  Country: US (occurrence: None)
  Receive Date: 20111102
  Receipt Date: 20130528
  Transmission Date: 20140414
  Serious: Yes (Hospitalization, Other)
  Sender: FDA-Public Use
  Company Number: US-2011-10755

PATIENT
  Age: 42 Year
  Sex: Male

DRUGS (14)
  1. BUSULFAN [Suspect]
     Indication: LYMPHOMA
     Route: 042
     Dates: start: 20110620, end: 20110620
  2. ETOPOSIDE (ETOPOSIDE) [Concomitant]
  3. CYCLOPHOSPHAMIDE (CYCLOPHOSPHAMIDE) [Concomitant]
  4. VICODIN [Concomitant]
  5. ZOFRAN [Concomitant]
  6. ATENOLOL (ATENOLOL) [Concomitant]
  7. ACYCLOVIR [Concomitant]
  8. FLUCONAZOLE [Concomitant]
  9. FUROSEMIDE (FUROSEMIDE) [Concomitant]
  10. MELOXICAM [Concomitant]
  11. ONDANSETRON [Concomitant]
  12. OXYCODONE (OXYCODONE) [Concomitant]
  13. RANTIDINE (RANITIDINE HYDROCHLORIDE) [Concomitant]
  14. BACTRIM DS [Concomitant]

REACTIONS (4)
  - Pneumonitis [None]
  - Sleep apnoea syndrome [None]
  - Pneumocystis jirovecii pneumonia [None]
  - Diffuse alveolar damage [None]
